FAERS Safety Report 21379701 (Version 2)
Quarter: 2022Q3

REPORT INFORMATION
  Report Type: Report from Study
  Country: EG (occurrence: EG)
  Receive Date: 20220927
  Receipt Date: 20220929
  Transmission Date: 20221026
  Serious: Yes (Other)
  Sender: FDA-Public Use
  Company Number: EG-NOVARTISPH-NVSC2022EG216580

PATIENT
  Age: 7 Year
  Sex: Female

DRUGS (3)
  1. OMNITROPE [Suspect]
     Active Substance: SOMATROPIN
     Indication: Growth hormone deficiency
     Dosage: 6 IU (5 MG/1.5ML)
     Route: 058
     Dates: start: 20200824
  2. OMNITROPE [Suspect]
     Active Substance: SOMATROPIN
     Dosage: UNK, QD (10 MG/1.5 ML)
     Route: 065
  3. OMNITROPE [Suspect]
     Active Substance: SOMATROPIN
     Dosage: UNK (5 MG/1.5 ML)
     Route: 058

REACTIONS (4)
  - Pneumonia [Recovered/Resolved]
  - Oropharyngeal pain [Recovered/Resolved]
  - Product availability issue [Not Recovered/Not Resolved]
  - Expired product administered [Not Recovered/Not Resolved]

NARRATIVE: CASE EVENT DATE: 20220825
